FAERS Safety Report 22908585 (Version 9)
Quarter: 2024Q3

REPORT INFORMATION
  Report Type: Spontaneous
  Country: CL (occurrence: CL)
  Receive Date: 20230905
  Receipt Date: 20240816
  Transmission Date: 20241017
  Serious: Yes (Other)
  Sender: SANDOZ
  Company Number: CL-002147023-NVSC2022CL102048

PATIENT
  Age: 67 Year
  Sex: Female

DRUGS (18)
  1. FULVESTRANT [Suspect]
     Active Substance: FULVESTRANT
     Dosage: UNK
     Route: 065
  2. FULVESTRANT [Suspect]
     Active Substance: FULVESTRANT
     Dosage: UNK, QD
     Route: 048
     Dates: start: 2020
  3. FULVESTRANT [Suspect]
     Active Substance: FULVESTRANT
     Dosage: UNK (11TH CYCLE)
     Route: 065
  4. FULVESTRANT [Suspect]
     Active Substance: FULVESTRANT
     Indication: Breast cancer
     Dosage: UNK 2 AMPOULES (EVERY 28 DAYS PERMANENT 50 MG/ML)
     Route: 065
     Dates: start: 20200530
  5. KISQALI [Suspect]
     Active Substance: RIBOCICLIB
     Dosage: 600 MG, QD
     Route: 048
     Dates: start: 20220506
  6. KISQALI [Suspect]
     Active Substance: RIBOCICLIB
     Dosage: 600 MG, QD (ONCE A DAY)
     Route: 048
     Dates: start: 20220506
  7. KISQALI [Suspect]
     Active Substance: RIBOCICLIB
     Indication: Breast cancer
     Dosage: 600 MG, QD
     Route: 048
     Dates: start: 20220506
  8. KISQALI [Suspect]
     Active Substance: RIBOCICLIB
     Dosage: 600 MG, QD
     Route: 048
     Dates: start: 20220506
  9. KISQALI [Suspect]
     Active Substance: RIBOCICLIB
     Dosage: 600 MG, QD
     Route: 048
     Dates: start: 20220506
  10. KISQALI [Suspect]
     Active Substance: RIBOCICLIB
     Dosage: 600 MG, QD  3 TABLETS (FOR 21 DAYS)
     Route: 048
     Dates: start: 20220530
  11. KISQALI [Suspect]
     Active Substance: RIBOCICLIB
     Dosage: 600 MG, QD
     Route: 048
     Dates: start: 202207
  12. KISQALI [Suspect]
     Active Substance: RIBOCICLIB
     Dosage: 600 MG
     Route: 065
     Dates: start: 20230315
  13. LETROZOLE [Suspect]
     Active Substance: LETROZOLE
     Dosage: UNK
     Route: 065
     Dates: start: 20220627
  14. LETROZOLE [Suspect]
     Active Substance: LETROZOLE
     Indication: Breast cancer
     Dosage: 1 DOSAGE FORM, QD
     Route: 048
     Dates: start: 2020
  15. LETROZOLE [Suspect]
     Active Substance: LETROZOLE
     Dosage: UNK, QD (ONCE A DAY)
     Route: 048
     Dates: start: 2020
  16. LETROZOLE [Suspect]
     Active Substance: LETROZOLE
     Dosage: UNK
     Route: 065
     Dates: start: 20220613, end: 20220621
  17. ZOMETA [Suspect]
     Active Substance: ZOLEDRONIC ACID
     Indication: Product used for unknown indication
     Dosage: 4 MG, (EVERY 12 WEEKS) (1 AMPOULE)
     Route: 065
  18. TAMOXIFEN [Concomitant]
     Active Substance: TAMOXIFEN
     Indication: Product used for unknown indication
     Dosage: UNK
     Route: 065

REACTIONS (38)
  - Metastases to liver [Unknown]
  - Leukopenia [Unknown]
  - Metastases to bone [Unknown]
  - Influenza [Unknown]
  - Nasopharyngitis [Recovered/Resolved]
  - Cough [Recovered/Resolved]
  - COVID-19 [Unknown]
  - Poor venous access [Unknown]
  - Visual impairment [Unknown]
  - Memory impairment [Unknown]
  - Lower respiratory tract congestion [Unknown]
  - Osteolysis [Unknown]
  - Capillary disorder [Unknown]
  - Temperature intolerance [Unknown]
  - Nail disorder [Unknown]
  - Skin exfoliation [Unknown]
  - Hypersensitivity [Unknown]
  - Elliptocytosis [Not Recovered/Not Resolved]
  - Polychromasia [Not Recovered/Not Resolved]
  - Blood thyroid stimulating hormone increased [Unknown]
  - Low density lipoprotein increased [Unknown]
  - Macrocytosis [Unknown]
  - Blood cholesterol increased [Unknown]
  - Anisocytosis [Not Recovered/Not Resolved]
  - AST/ALT ratio abnormal [Unknown]
  - Lymphocyte count decreased [Unknown]
  - Red blood cell sedimentation rate increased [Unknown]
  - Eosinophil percentage decreased [Unknown]
  - Mean cell haemoglobin increased [Unknown]
  - Red blood cell count decreased [Unknown]
  - Mean cell volume increased [Unknown]
  - Red cell distribution width increased [Unknown]
  - Neutrophil count decreased [Unknown]
  - Initial insomnia [Unknown]
  - Alopecia [Unknown]
  - Pain [Unknown]
  - Product dose omission in error [Unknown]
  - Drug ineffective [Unknown]

NARRATIVE: CASE EVENT DATE: 20230614
